FAERS Safety Report 7806127-6 (Version None)
Quarter: 2011Q4

REPORT INFORMATION
  Report Type: 
  Country: None (occurrence: None)
  Receive Date: 20111011
  Receipt Date: 20111003
  Transmission Date: 20120403
  Serious: No
  Sender: FDA-Public Use
  Company Number: US-PFIZER INC-2011238785

PATIENT
  Sex: Female

DRUGS (4)
  1. SUTENT [Suspect]
     Indication: RENAL CELL CARCINOMA
     Dosage: UNK
  2. SUTENT [Suspect]
     Indication: METASTASES TO CENTRAL NERVOUS SYSTEM
  3. SUTENT [Suspect]
     Indication: METASTASES TO LUNG
  4. DENOSUMAB [Suspect]
     Indication: OSTEONECROSIS
     Dosage: UNK

REACTIONS (3)
  - GINGIVAL RECESSION [None]
  - STOMATITIS [None]
  - TOOTH EXTRACTION [None]
